FAERS Safety Report 6299488-3 (Version None)
Quarter: 2009Q3

REPORT INFORMATION
  Report Type: 
  Country: None (occurrence: None)
  Receive Date: 20090806
  Receipt Date: 20090729
  Transmission Date: 20100115
  Serious: Yes (Other)
  Sender: FDA-Public Use
  Company Number: B0586542A

PATIENT
  Sex: Female
  Weight: 56 kg

DRUGS (4)
  1. LAPATINIB [Suspect]
     Indication: BREAST CANCER
     Dosage: 1500MG PER DAY
     Route: 048
     Dates: start: 20081006
  2. BISOPROLOL FUMARATE [Concomitant]
     Dosage: 2.5MG PER DAY
     Route: 048
     Dates: start: 20040101
  3. ALENDRONATE SODIUM [Concomitant]
     Dosage: 70MG PER DAY
     Route: 048
     Dates: start: 20060101
  4. SODIUM LEVOTHYROXINE [Concomitant]
     Dosage: 100MG PER DAY
     Route: 048
     Dates: start: 20040101

REACTIONS (1)
  - PANCREATIC CARCINOMA [None]
